FAERS Safety Report 8051056-9 (Version None)
Quarter: 2012Q1

REPORT INFORMATION
  Report Type: 
  Country: None (occurrence: None)
  Receive Date: 20120117
  Receipt Date: 20120111
  Transmission Date: 20120608
  Serious: Yes (Death)
  Sender: FDA-Public Use
  Company Number: PHHY2012MX002508

PATIENT
  Sex: Female

DRUGS (3)
  1. INHALATION [Concomitant]
  2. LEVOTHYROXINE SODIUM [Concomitant]
     Dosage: ONCE A DAY
  3. DIOVAN [Suspect]
     Indication: HYPERTENSION
     Dosage: 1 DF, (80 MG VALS) DAILY
     Dates: start: 20101106

REACTIONS (4)
  - CEREBRAL INFARCTION [None]
  - LOSS OF CONSCIOUSNESS [None]
  - CEREBROVASCULAR ACCIDENT [None]
  - GENERAL PHYSICAL HEALTH DETERIORATION [None]
